FAERS Safety Report 16397809 (Version 2)
Quarter: 2019Q2

REPORT INFORMATION
  Report Type: Spontaneous
  Country: JP (occurrence: JP)
  Receive Date: 20190606
  Receipt Date: 20190612
  Transmission Date: 20190711
  Serious: Yes (Other)
  Sender: FDA-Public Use
  Company Number: JP-ROCHE-2330775

PATIENT
  Age: 69 Year
  Sex: Female

DRUGS (3)
  1. XELODA [Suspect]
     Active Substance: CAPECITABINE
     Indication: BREAST CANCER
     Route: 048
  2. CYCLOPHOSPHAMIDE. [Concomitant]
     Active Substance: CYCLOPHOSPHAMIDE
     Indication: BREAST CANCER
     Route: 065
  3. DENOSUMAB [Concomitant]
     Active Substance: DENOSUMAB
     Indication: BREAST CANCER
     Route: 065

REACTIONS (6)
  - Metastases to pleura [Unknown]
  - Retinal detachment [Unknown]
  - Metastases to bone [Unknown]
  - Metastases to eye [Unknown]
  - Metastases to central nervous system [Unknown]
  - Lymphangiosis carcinomatosa [Unknown]
